FAERS Safety Report 18408412 (Version 4)
Quarter: 2021Q1

REPORT INFORMATION
  Report Type: Spontaneous
  Country: JP (occurrence: JP)
  Receive Date: 20201021
  Receipt Date: 20210113
  Transmission Date: 20210419
  Serious: Yes (Hospitalization)
  Sender: FDA-Public Use
  Company Number: JP-GLAXOSMITHKLINE-JP2020206227

PATIENT
  Age: 86 Year
  Sex: Female
  Weight: 69 kg

DRUGS (4)
  1. VIDARABINE OINTMENT [Concomitant]
     Indication: HERPES ZOSTER
     Dosage: UNK, 2 TO 3 TIMES APPLYING DAILY
     Route: 061
     Dates: start: 20201009, end: 20201016
  2. VALTREX [Suspect]
     Active Substance: VALACYCLOVIR HYDROCHLORIDE
     Indication: HERPES ZOSTER
     Dosage: 1000 MG, TID
     Route: 048
     Dates: start: 20201009, end: 20201016
  3. LOXOPROFEN NA [Concomitant]
     Active Substance: LOXOPROFEN SODIUM
     Indication: HERPES ZOSTER
     Dosage: 180 MG
     Route: 048
     Dates: start: 20201009, end: 20201016
  4. ACETAMINOPHEN TABLETS [Concomitant]
     Active Substance: ACETAMINOPHEN
     Indication: HERPES ZOSTER
     Dosage: 400 MG, PREN 400 MG PER DOSE
     Route: 048
     Dates: start: 20201009

REACTIONS (7)
  - Skin ulcer [Recovered/Resolved]
  - Blister [Recovered/Resolved with Sequelae]
  - Skin exfoliation [Recovered/Resolved]
  - Therapeutic response decreased [Unknown]
  - Herpes zoster [Recovering/Resolving]
  - Condition aggravated [Not Recovered/Not Resolved]
  - Pain [Not Recovered/Not Resolved]

NARRATIVE: CASE EVENT DATE: 202010
